FAERS Safety Report 8817996 (Version 4)
Quarter: 2013Q4

REPORT INFORMATION
  Report Type: Report from Study
  Country: CA (occurrence: CA)
  Receive Date: 20121002
  Receipt Date: 20131217
  Transmission Date: 20140711
  Serious: Yes (Other)
  Sender: FDA-Public Use
  Company Number: US-INCYTE CORPORATION-2012IN001931

PATIENT
  Sex: Male

DRUGS (7)
  1. JAKAVI [Suspect]
     Indication: MYELOFIBROSIS
     Dosage: 15 MG, BID
     Route: 048
     Dates: start: 20120221
  2. JAKAVI [Suspect]
     Dosage: 15 MG, BID
     Route: 048
     Dates: start: 201208
  3. ASA [Concomitant]
  4. VITAMIN D3 [Concomitant]
  5. SYNTHROID [Concomitant]
  6. DESFERAL [Concomitant]
     Dosage: UNK
     Dates: start: 20131128
  7. VITAMIN D                          /00107901/ [Concomitant]

REACTIONS (4)
  - Serum ferritin increased [Recovering/Resolving]
  - Haemoglobin decreased [Not Recovered/Not Resolved]
  - Nasopharyngitis [Unknown]
  - Oropharyngeal pain [Unknown]
